FAERS Safety Report 5500761-4 (Version None)
Quarter: 2007Q4

REPORT INFORMATION
  Report Type: 
  Country: None (occurrence: None)
  Receive Date: 20071029
  Receipt Date: 20071017
  Transmission Date: 20080405
  Serious: Yes (Death, Hospitalization)
  Sender: FDA-Public Use
  Company Number: BR-BRISTOL-MYERS SQUIBB COMPANY-13957584

PATIENT
  Age: 53 Year
  Sex: Male

DRUGS (3)
  1. SINEMET [Suspect]
     Indication: PARKINSONISM
     Dosage: DOSAGE:UPTO 500MG/DAY
     Route: 048
  2. SINEMET [Suspect]
     Indication: DEMENTIA
     Dosage: DOSAGE:UPTO 500MG/DAY
     Route: 048
  3. MEMANTINE HCL [Concomitant]

REACTIONS (4)
  - DEMENTIA [None]
  - PARKINSON'S DISEASE [None]
  - SEPSIS [None]
  - TRANSPLANT REJECTION [None]
